FAERS Safety Report 7558880-7 (Version None)
Quarter: 2011Q2

REPORT INFORMATION
  Report Type: 
  Country: None (occurrence: None)
  Receive Date: 20110621
  Receipt Date: 20110613
  Transmission Date: 20111010
  Serious: Yes (Other)
  Sender: FDA-Public Use
  Company Number: GB-AMGEN-GBRSP2011030777

PATIENT
  Age: 61 Year
  Sex: Male

DRUGS (2)
  1. TESTOSTERONE [Concomitant]
     Dosage: UNK
  2. ENBREL [Suspect]
     Indication: ANKYLOSING SPONDYLITIS
     Dosage: 50 MG, WEEKLY
     Dates: start: 20050401, end: 20110602

REACTIONS (1)
  - PROSTATE CANCER [None]
